FAERS Safety Report 13863565 (Version 4)
Quarter: 2017Q4

REPORT INFORMATION
  Report Type: Spontaneous
  Country: US (occurrence: US)
  Receive Date: 20170814
  Receipt Date: 20171102
  Transmission Date: 20180320
  Serious: No
  Sender: FDA-Public Use
  Company Number: US-PFIZER INC-2017349238

PATIENT
  Age: 80 Year
  Sex: Female
  Weight: 68.93 kg

DRUGS (2)
  1. XALKORI [Suspect]
     Active Substance: CRIZOTINIB
     Indication: LUNG CANCER METASTATIC
     Dosage: 250 MG, 2X/DAY
     Route: 048
     Dates: start: 20170803
  2. XALKORI [Suspect]
     Active Substance: CRIZOTINIB
     Dosage: 250 MG, 2X/DAY
     Route: 048
     Dates: start: 20170808

REACTIONS (6)
  - Nausea [Recovering/Resolving]
  - Pallor [Unknown]
  - Dizziness [Recovering/Resolving]
  - Vision blurred [Unknown]
  - Neoplasm progression [Unknown]
  - Visual impairment [Unknown]
